FAERS Safety Report 4390954-4 (Version None)
Quarter: 2004Q3

REPORT INFORMATION
  Report Type: 
  Country: None (occurrence: None)
  Receive Date: 20040707
  Receipt Date: 20040625
  Transmission Date: 20050211
  Serious: Yes (Hospitalization)
  Sender: FDA-Public Use
  Company Number: US-AMGEN-US081839

PATIENT
  Sex: Female
  Weight: 72.6 kg

DRUGS (1)
  1. EPOGEN [Suspect]
     Indication: PREOPERATIVE CARE
     Dates: start: 20000801, end: 20001001

REACTIONS (2)
  - HERNIA REPAIR [None]
  - INJECTION SITE PAIN [None]
